FAERS Safety Report 15116951 (Version 1)
Quarter: 2018Q3

REPORT INFORMATION
  Report Type: Spontaneous
  Country: US (occurrence: US)
  Receive Date: 20180706
  Receipt Date: 20180706
  Transmission Date: 20181010
  Serious: No
  Sender: FDA-Public Use
  Company Number: US-GLAXOSMITHKLINE-US2018114693

PATIENT
  Age: 80 Year
  Sex: Female

DRUGS (1)
  1. NICODERM CQ [Suspect]
     Active Substance: NICOTINE
     Indication: SMOKING CESSATION THERAPY
     Dosage: 14 MG, 1D
     Route: 062
     Dates: start: 20180515

REACTIONS (6)
  - Hypersensitivity [Unknown]
  - Application site reaction [Unknown]
  - Application site erythema [Unknown]
  - Application site erosion [Unknown]
  - Application site pruritus [Unknown]
  - Irritability [Unknown]
